FAERS Safety Report 11192463 (Version 1)
Quarter: 2015Q2

REPORT INFORMATION
  Report Type: Spontaneous
  Country: FR (occurrence: FR)
  Receive Date: 20150616
  Receipt Date: 20150616
  Transmission Date: 20150821
  Serious: Yes (Hospitalization)
  Sender: FDA-Public Use
  Company Number: FR-ASTRAZENECA-2015SE59249

PATIENT
  Age: 80 Year
  Sex: Female

DRUGS (9)
  1. SULFARLEM [Concomitant]
     Active Substance: ANETHOLTRITHION
  2. COUMADINE [Concomitant]
     Active Substance: WARFARIN SODIUM
  3. SERTRALINE [Concomitant]
     Active Substance: SERTRALINE HYDROCHLORIDE
     Dates: end: 20150326
  4. XEROQUEL [Suspect]
     Active Substance: QUETIAPINE FUMARATE
     Indication: BIPOLAR DISORDER
     Route: 048
  5. CYAMEMAZINE [Concomitant]
     Active Substance: CYAMEMAZINE
  6. XEROQUEL [Suspect]
     Active Substance: QUETIAPINE FUMARATE
     Indication: BIPOLAR DISORDER
     Route: 048
     Dates: start: 20140923, end: 20150326
  7. LORAZEPAM. [Concomitant]
     Active Substance: LORAZEPAM
  8. TERALITHE [Concomitant]
     Active Substance: LITHIUM CARBONATE
  9. LERCANIDIPINE [Concomitant]
     Active Substance: LERCANIDIPINE

REACTIONS (1)
  - Hepatitis [Recovering/Resolving]

NARRATIVE: CASE EVENT DATE: 20150326
